FAERS Safety Report 4592656-8 (Version None)
Quarter: 2005Q1

REPORT INFORMATION
  Report Type: 
  Country: None (occurrence: None)
  Receive Date: 20050218
  Receipt Date: 20050203
  Transmission Date: 20050727
  Serious: Yes (Death, Hospitalization)
  Sender: FDA-Public Use
  Company Number: A-CH2005-08800

PATIENT
  Age: 65 Year
  Sex: Female

DRUGS (8)
  1. TRACLEER [Suspect]
     Indication: PULMONARY HYPERTENSION
     Dosage: SEE IMAGE
     Route: 048
     Dates: start: 20040323, end: 20040401
  2. TRACLEER [Suspect]
     Indication: PULMONARY HYPERTENSION
     Dosage: SEE IMAGE
     Route: 048
     Dates: start: 20040401
  3. CORTISONE (CORTISONE) [Concomitant]
  4. IMUREK [Concomitant]
  5. IDEOS (CALCIUM CARBONATE, COLECALCIFEROL) [Concomitant]
  6. MARCUMAR (PHENOPROCUMON) [Concomitant]
  7. OXYGEN (OXYGEN) [Concomitant]
  8. PRAVASTATIN SODIUM [Concomitant]

REACTIONS (3)
  - DISEASE PROGRESSION [None]
  - PULMONARY FIBROSIS [None]
  - RIGHT VENTRICULAR FAILURE [None]
